FAERS Safety Report 5005123-4 (Version None)
Quarter: 2006Q2

REPORT INFORMATION
  Report Type: 
  Country: None (occurrence: None)
  Receive Date: 20060516
  Receipt Date: 20060516
  Transmission Date: 20061013
  Serious: No
  Sender: FDA-Public Use
  Company Number: None

PATIENT
  Age: 82 Year
  Sex: Male

DRUGS (1)
  1. METOPROLOL SUCCINATE EXTENDED RELEASE [Suspect]
     Indication: CORONARY ARTERY DISEASE
     Dosage: 50MG DAILY
     Dates: start: 20051013

REACTIONS (1)
  - ATRIOVENTRICULAR BLOCK COMPLETE [None]
